FAERS Safety Report 4450298-9 (Version None)
Quarter: 2004Q3

REPORT INFORMATION
  Report Type: 
  Country: None (occurrence: None)
  Receive Date: 20040914
  Receipt Date: 20040831
  Transmission Date: 20050211
  Serious: Yes (Death, Other)
  Sender: FDA-Public Use
  Company Number: 2004057204

PATIENT
  Age: 71 Year
  Sex: Male

DRUGS (14)
  1. UNASYN [Suspect]
     Indication: INFECTION PROPHYLAXIS
     Dosage: (3 GRAM, 1 IN 1 D), INTRAVENOUS
     Route: 042
     Dates: start: 20040723, end: 20040726
  2. SULPERAZON (CEFOPERAZONE, SULBACTAM) [Suspect]
     Indication: ILL-DEFINED DISORDER
     Dosage: INTRAVENOUS
     Route: 042
     Dates: start: 20040706, end: 20040711
  3. ANTITHROMBIN III (ANTITHROMBIN III) [Concomitant]
  4. TIENAM (CILASTATIN, IMIPENEM) [Concomitant]
  5. GENTAMICIN SULFATE [Concomitant]
  6. PREDNISOLONE [Concomitant]
  7. STRONG NEO-MINOPHAGEN C (AMINOACETIC ACID, CYSTEINE, GLYCYRRHIZIC ACID [Concomitant]
  8. SIVELESTAT (SIVELESTAT) [Concomitant]
  9. NAFAMOSTAT MESILATE (NAFAMOSTAT MESILATE) [Concomitant]
  10. MIDAZOLAM HCL [Concomitant]
  11. BUPRENORPHINE HYDROCHLORIDE [Concomitant]
  12. I.V. SOLUTIONS (I.V. SOLUTIONS) [Concomitant]
  13. DOPAMINE HCL [Concomitant]
  14. DOBUTAMINE HYDROCHLORIDE (DOBUTAMINE HYDROCHLORLDE) [Concomitant]

REACTIONS (15)
  - ACUTE MYOCARDIAL INFARCTION [None]
  - BLOOD PRESSURE DECREASED [None]
  - BURNING SENSATION [None]
  - DERMATITIS EXFOLIATIVE [None]
  - DISSEMINATED INTRAVASCULAR COAGULATION [None]
  - ERYTHEMA [None]
  - HYPERSENSITIVITY [None]
  - IMMUNOGLOBULINS INCREASED [None]
  - MYOCARDIAL RUPTURE [None]
  - PERICARDIAL EFFUSION [None]
  - RESPIRATORY DISORDER [None]
  - RESUSCITATION [None]
  - SHOCK [None]
  - STAPHYLOCOCCAL SEPSIS [None]
  - TOXIC EPIDERMAL NECROLYSIS [None]
